FAERS Safety Report 11583734 (Version 1)
Quarter: 2015Q3

REPORT INFORMATION
  Report Type: Spontaneous
  Country: US (occurrence: None)
  Receive Date: 20150930
  Receipt Date: 20150930
  Transmission Date: 20151125
  Serious: Yes (Hospitalization)
  Sender: FDA-Public Use
  Company Number: None

PATIENT
  Age: 9 Day
  Sex: Male
  Weight: .8 kg

DRUGS (1)
  1. ENALAPRILAT 1.25MG/ML [Suspect]
     Active Substance: ENALAPRILAT
     Indication: HYPERTENSION
     Dosage: 0.01 MG/KG (8.25 MCG/DOSE)
     Route: 042
     Dates: start: 20150903, end: 20150904

REACTIONS (3)
  - Anuria [None]
  - Blood creatinine increased [None]
  - Blood pressure abnormal [None]

NARRATIVE: CASE EVENT DATE: 20150904
